FAERS Safety Report 21146969 (Version 2)
Quarter: 2022Q3

REPORT INFORMATION
  Report Type: Spontaneous
  Country: JP (occurrence: JP)
  Receive Date: 20220729
  Receipt Date: 20220902
  Transmission Date: 20221027
  Serious: Yes (Hospitalization)
  Sender: FDA-Public Use
  Company Number: JP-PFIZER INC-PV202200030423

PATIENT
  Age: 61 Year
  Sex: Male
  Weight: 87 kg

DRUGS (7)
  1. PAXLOVID [Suspect]
     Active Substance: NIRMATRELVIR\RITONAVIR
     Indication: COVID-19 treatment
     Dosage: [PF-07321332 300 MG]/[RITONAVIR 100 MG]; 2X/DAY
     Route: 048
     Dates: start: 20220720, end: 20220724
  2. BROTIZOLAM [Concomitant]
     Active Substance: BROTIZOLAM
     Indication: Insomnia
     Dosage: 0.25 MG, 1X/DAY
     Route: 048
     Dates: start: 20161017
  3. VONOPRAZAN FUMARATE [Concomitant]
     Active Substance: VONOPRAZAN FUMARATE
     Indication: Gastrooesophageal reflux disease
     Dosage: 10 MG, DAILY
     Route: 048
     Dates: start: 20220709
  4. DEXTROMETHORPHAN HYDROBROMIDE [Concomitant]
     Active Substance: DEXTROMETHORPHAN HYDROBROMIDE
     Indication: Pharyngitis
     Dosage: 15 MG, 3X/DAY
     Route: 048
     Dates: start: 20220720
  5. TRANSAMIN [Concomitant]
     Active Substance: TRANEXAMIC ACID
     Indication: Pharyngitis
     Dosage: 250 MG, 3X/DAY
     Route: 048
     Dates: start: 20220720
  6. DEQUALINIUM CHLORIDE [Concomitant]
     Active Substance: DEQUALINIUM CHLORIDE
     Indication: Pharyngitis
     Dosage: UNK, AS NEEDED
     Route: 048
     Dates: start: 20220720
  7. SODIUM GUALENATE MONOHYDRATE [Concomitant]
     Active Substance: SODIUM GUALENATE MONOHYDRATE
     Indication: Pharyngitis
     Dosage: UNK, AS NEEDED
     Route: 048
     Dates: start: 20220720

REACTIONS (1)
  - Cerebral infarction [Unknown]
